FAERS Safety Report 10068503 (Version 1)
Quarter: 2014Q2

REPORT INFORMATION
  Report Type: Spontaneous
  Country: DE (occurrence: DE)
  Receive Date: 20140409
  Receipt Date: 20140409
  Transmission Date: 20141212
  Serious: Yes (Hospitalization, Other)
  Sender: FDA-Public Use
  Company Number: DE-PFIZER INC-2014093837

PATIENT
  Age: 40 Year
  Sex: Male

DRUGS (2)
  1. VIAGRA [Suspect]
     Dosage: MOSTLY 1-2 PER WEEK 50 MG AS NEEDED
  2. VIAGRA [Suspect]
     Dosage: 100 MG, UNK
     Dates: end: 201401

REACTIONS (7)
  - Infarction [Recovering/Resolving]
  - Photopsia [Recovering/Resolving]
  - Visual impairment [Recovering/Resolving]
  - Blindness unilateral [Recovering/Resolving]
  - Vascular occlusion [Recovering/Resolving]
  - Thrombosis [Recovering/Resolving]
  - Ocular vascular disorder [Recovering/Resolving]
